FAERS Safety Report 8248262-7 (Version None)
Quarter: 2012Q1

REPORT INFORMATION
  Report Type: 
  Country: None (occurrence: None)
  Receive Date: 20120330
  Receipt Date: 20120322
  Transmission Date: 20120608
  Serious: Yes (Other)
  Sender: FDA-Public Use
  Company Number: US-FRI-1000024713

PATIENT
  Sex: Female
  Weight: 53.5 kg

DRUGS (8)
  1. SAVELLA [Suspect]
     Dosage: 25 MG
     Route: 048
  2. SAVELLA [Suspect]
     Indication: INTERVERTEBRAL DISC PROTRUSION
  3. SAVELLA [Suspect]
     Indication: BACK PAIN
  4. SAVELLA [Suspect]
     Indication: SCIATICA
  5. SAVELLA [Suspect]
     Dosage: 100 MG
     Route: 048
     Dates: start: 20110612, end: 20110626
  6. SAVELLA [Suspect]
     Indication: FIBROMYALGIA
     Route: 048
  7. SAVELLA [Suspect]
     Dosage: TAPERED DOSE
     Route: 048
  8. SAVELLA [Suspect]

REACTIONS (6)
  - CAPILLARY FRAGILITY [None]
  - INSOMNIA [None]
  - MIGRAINE [None]
  - HYPERTENSION [None]
  - HEART RATE INCREASED [None]
  - VISION BLURRED [None]
